FAERS Safety Report 5333431-6 (Version None)
Quarter: 2007Q2

REPORT INFORMATION
  Report Type: 
  Country: None (occurrence: None)
  Receive Date: 20070306
  Receipt Date: 20060214
  Transmission Date: 20071010
  Serious: Yes (Other)
  Sender: FDA-Public Use
  Company Number: A03200600905

PATIENT
  Age: 74 Year
  Sex: Female
  Weight: 63.94 kg

DRUGS (5)
  1. PLAVIX [Suspect]
     Dosage: 75 MG QD - ORAL
     Route: 048
     Dates: start: 20060206, end: 20060209
  2. DONEPEZIL HCL [Concomitant]
  3. ATORVASTATIN [Concomitant]
  4. DILTIAZEM HYDROCHLORIDE [Concomitant]
  5. OXYBUTIN [Concomitant]

REACTIONS (2)
  - JOINT INJURY [None]
  - LOSS OF CONSCIOUSNESS [None]
